FAERS Safety Report 16249612 (Version 1)
Quarter: 2019Q2

REPORT INFORMATION
  Report Type: Spontaneous
  Country: RU (occurrence: RU)
  Receive Date: 20190429
  Receipt Date: 20190429
  Transmission Date: 20190711
  Serious: Yes (Hospitalization, Other)
  Sender: FDA-Public Use
  Company Number: RU-MICRO LABS LIMITED-ML2019-01067

PATIENT

DRUGS (1)
  1. VERAPAMIL HYDROCHLORIDE. [Suspect]
     Active Substance: VERAPAMIL HYDROCHLORIDE
     Indication: VASOSPASM
     Dosage: 0.25 MG/ML
     Route: 013

REACTIONS (2)
  - Intracranial pressure increased [Recovered/Resolved]
  - Off label use [Unknown]
